FAERS Safety Report 21218400 (Version 1)
Quarter: 2022Q3

REPORT INFORMATION
  Report Type: Spontaneous
  Country: US (occurrence: None)
  Receive Date: 20220816
  Receipt Date: 20220816
  Transmission Date: 20221027
  Serious: No
  Sender: FDA-Public Use
  Company Number: None

PATIENT
  Sex: Female

DRUGS (1)
  1. LENALIDOMIDE [Suspect]
     Active Substance: LENALIDOMIDE
     Indication: Plasma cell myeloma
     Dosage: ?10MG DAILY ORAL
     Route: 048

REACTIONS (8)
  - Stomatitis [None]
  - Oral mucosal erythema [None]
  - Leukoplakia oral [None]
  - Mouth ulceration [None]
  - Oral pain [None]
  - Constipation [None]
  - Nausea [None]
  - Hypophagia [None]
